FAERS Safety Report 6872835-7 (Version None)
Quarter: 2010Q3

REPORT INFORMATION
  Report Type: 
  Country: None (occurrence: None)
  Receive Date: 20100723
  Receipt Date: 20081031
  Transmission Date: 20110219
  Serious: No
  Sender: FDA-Public Use
  Company Number: US-PFIZER INC-2008086758

PATIENT
  Sex: Female
  Weight: 49.44 kg

DRUGS (3)
  1. CHANTIX [Suspect]
     Indication: SMOKING CESSATION THERAPY
     Route: 048
     Dates: start: 20080626, end: 20081009
  2. SIMVASTATIN [Concomitant]
  3. GABAPENTIN [Concomitant]

REACTIONS (2)
  - FATIGUE [None]
  - SLUGGISHNESS [None]
